FAERS Safety Report 7934915-4 (Version None)
Quarter: 2011Q4

REPORT INFORMATION
  Report Type: 
  Country: None (occurrence: None)
  Receive Date: 20111122
  Receipt Date: 20110825
  Transmission Date: 20120403
  Serious: No
  Sender: FDA-Public Use
  Company Number: US-MYLANLABS-2011S1011924

PATIENT
  Age: 73 Year
  Sex: Female
  Weight: 63.5 kg

DRUGS (11)
  1. LANSOPRAZOLE [Suspect]
     Route: 048
     Dates: start: 20110626, end: 20110626
  2. CHONDROITIN SULFATE + GLUCOSAMINE [Concomitant]
  3. LANSOPRAZOLE [Suspect]
     Indication: GASTROOESOPHAGEAL REFLUX DISEASE
     Route: 048
     Dates: start: 20110529, end: 20110531
  4. BIOTIN [Concomitant]
  5. DIOVAN [Concomitant]
  6. CARVEDILOL [Concomitant]
  7. SIMVASTATIN [Concomitant]
  8. FOLBEE PLUS [Concomitant]
  9. FISH OIL [Concomitant]
  10. ASPIRIN [Concomitant]
  11. PREVACID [Concomitant]

REACTIONS (2)
  - DYSPEPSIA [None]
  - GASTROINTESTINAL DISORDER [None]
